FAERS Safety Report 22723111 (Version 5)
Quarter: 2023Q4

REPORT INFORMATION
  Report Type: Other
  Country: CA (occurrence: None)
  Receive Date: 20230719
  Receipt Date: 20231102
  Transmission Date: 20240109
  Serious: Yes (Hospitalization)
  Sender: FDA-Public Use
  Company Number: CA-ROCHE-3387978

PATIENT
  Sex: Male

DRUGS (6)
  1. OCREVUS [Suspect]
     Active Substance: OCRELIZUMAB
     Indication: Relapsing-remitting multiple sclerosis
     Dosage: 300 MG AT DAY 0 AND 14, THEN 600 MG EVERY 6 MONTH
     Route: 042
     Dates: start: 20180611
  2. TICAGRELOR [Concomitant]
     Active Substance: TICAGRELOR
  3. RAMIPRIL [Concomitant]
     Active Substance: RAMIPRIL
  4. METOPROLOL [Concomitant]
     Active Substance: METOPROLOL
  5. ATORVASTATIN [Concomitant]
     Active Substance: ATORVASTATIN
  6. ASPIRIN [Concomitant]
     Active Substance: ASPIRIN

REACTIONS (3)
  - Myocardial infarction [Not Recovered/Not Resolved]
  - Infection [Not Recovered/Not Resolved]
  - Fall [Unknown]
